FAERS Safety Report 9019453 (Version 1)
Quarter: 2013Q1

REPORT INFORMATION
  Report Type: Spontaneous
  Country: FR (occurrence: FR)
  Receive Date: 20130118
  Receipt Date: 20130118
  Transmission Date: 20140127
  Serious: Yes (Hospitalization)
  Sender: FDA-Public Use
  Company Number: FR-ASTRAZENECA-2013SE02299

PATIENT
  Sex: Female

DRUGS (3)
  1. XEROQUEL [Suspect]
     Route: 048
  2. NOCTAMIDE [Suspect]
  3. TERCIAN [Suspect]
     Dosage: 40 MG / ML

REACTIONS (1)
  - Wrong drug administered [Unknown]
